FAERS Safety Report 24200362 (Version 18)
Quarter: 2025Q2

REPORT INFORMATION
  Report Type: Spontaneous
  Country: US (occurrence: US)
  Receive Date: 20240812
  Receipt Date: 20250613
  Transmission Date: 20250717
  Serious: No
  Sender: PFIZER
  Company Number: US-PFIZER INC-PV202400076819

PATIENT
  Age: 72 Year
  Sex: Female

DRUGS (6)
  1. TUKYSA [Suspect]
     Active Substance: TUCATINIB
     Indication: Breast cancer female
     Dosage: 300 MG, 2X/DAY
     Route: 048
  2. TUKYSA [Suspect]
     Active Substance: TUCATINIB
     Dosage: 450 MG, DAILY
  3. TUKYSA [Suspect]
     Active Substance: TUCATINIB
     Dosage: 150 MG, 2X/DAY
  4. TUKYSA [Suspect]
     Active Substance: TUCATINIB
     Dosage: 1 TABLET EVERY MORNING AND 2 IN THE EVENING/A 150MG; 1 TABLET EVERY MORNING AND 2 EVERY EVENING
     Route: 048
  5. TUKYSA [Suspect]
     Active Substance: TUCATINIB
     Dosage: ONE TABLET IN THE MORNING AND TWO TABLETS IN THE EVENING WITH OR WITHOUT FOOD
  6. TUKYSA [Suspect]
     Active Substance: TUCATINIB
     Dosage: 150MG; 1 TABLET IN THE MORNING, 2 TABLETS IN THE EVENING

REACTIONS (5)
  - Gait disturbance [Unknown]
  - Diarrhoea [Unknown]
  - Illness [Unknown]
  - Off label use [Unknown]
  - Off label use [Unknown]
